FAERS Safety Report 12615814 (Version 3)
Quarter: 2016Q3

REPORT INFORMATION
  Report Type: Report from Study
  Country: US (occurrence: US)
  Receive Date: 20160802
  Receipt Date: 20160927
  Transmission Date: 20161109
  Serious: Yes (Death, Other)
  Sender: FDA-Public Use
  Company Number: US-JNJFOC-20160726678

PATIENT
  Age: 72 Year
  Sex: Male

DRUGS (11)
  1. DRONABINOL. [Concomitant]
     Active Substance: DRONABINOL
  2. NEXIUM [Concomitant]
     Active Substance: ESOMEPRAZOLE MAGNESIUM
  3. VITAMIN D [Concomitant]
     Active Substance: CHOLECALCIFEROL
  4. LASIX [Concomitant]
     Active Substance: FUROSEMIDE
  5. NORCO [Concomitant]
     Active Substance: ACETAMINOPHEN\HYDROCODONE BITARTRATE
  6. TYLENOL [Concomitant]
     Active Substance: ACETAMINOPHEN
  7. METOPROLOL. [Concomitant]
     Active Substance: METOPROLOL
  8. AMIODARONE [Concomitant]
     Active Substance: AMIODARONE
  9. LORAZEPAM. [Concomitant]
     Active Substance: LORAZEPAM
  10. IMBRUVICA [Suspect]
     Active Substance: IBRUTINIB
     Indication: MANTLE CELL LYMPHOMA
     Route: 048
     Dates: start: 20160719
  11. CHOLECALCIFEROL [Concomitant]
     Active Substance: CHOLECALCIFEROL

REACTIONS (3)
  - Platelet count decreased [Unknown]
  - Red blood cell count decreased [Unknown]
  - Tumour lysis syndrome [Fatal]

NARRATIVE: CASE EVENT DATE: 201607
